FAERS Safety Report 9972609 (Version 1)
Quarter: 2014Q1

REPORT INFORMATION
  Report Type: Report from Study
  Country: US (occurrence: US)
  Receive Date: 20140306
  Receipt Date: 20140306
  Transmission Date: 20141002
  Serious: No
  Sender: FDA-Public Use
  Company Number: US-ABBVIE-13P-163-1154303-00

PATIENT
  Age: 70 Year
  Sex: Female

DRUGS (12)
  1. HUMIRA [Suspect]
     Indication: RHEUMATOID ARTHRITIS
     Dates: start: 20130807
  2. PREDNISONE [Concomitant]
     Indication: PRODUCT USED FOR UNKNOWN INDICATION
  3. GENERIC ARAVA [Concomitant]
     Indication: RHEUMATOID ARTHRITIS
  4. TRAZODONE [Concomitant]
     Indication: ARTHRALGIA
  5. ATENOLOL [Concomitant]
     Indication: PRODUCT USED FOR UNKNOWN INDICATION
     Dosage: ONE IN MORNING ONE IN EVENING
  6. DIOVAN [Concomitant]
     Indication: HYPERTENSION
  7. ZOCOR [Concomitant]
     Indication: BLOOD CHOLESTEROL INCREASED
  8. DIGOXIN [Concomitant]
     Indication: CARDIAC DISORDER
  9. LEVOTHYROXINE [Concomitant]
     Indication: PRODUCT USED FOR UNKNOWN INDICATION
  10. PRILOSEC [Concomitant]
     Indication: GASTROOESOPHAGEAL REFLUX DISEASE
  11. COUMADIN [Concomitant]
     Indication: PRODUCT USED FOR UNKNOWN INDICATION
     Dosage: ALTERNATING DAYS OF 2 MG AND 2.5 MG
  12. COUMADIN [Concomitant]

REACTIONS (1)
  - Injection site haemorrhage [Recovered/Resolved]
